FAERS Safety Report 6032506-6 (Version None)
Quarter: 2009Q1

REPORT INFORMATION
  Report Type: 
  Country: None (occurrence: None)
  Receive Date: 20090109
  Receipt Date: 20081016
  Transmission Date: 20090719
  Serious: No
  Sender: FDA-Public Use
  Company Number: A0752181A

PATIENT
  Age: 54 Year
  Sex: Female

DRUGS (4)
  1. TYKERB [Suspect]
     Indication: BREAST CANCER
     Dosage: 1250MG PER DAY
     Route: 048
     Dates: start: 20081012
  2. XELODA [Suspect]
     Indication: BREAST CANCER
     Dates: start: 20081012
  3. LEVAQUIN [Concomitant]
  4. LORAZEPAM [Concomitant]

REACTIONS (2)
  - NAUSEA [None]
  - VOMITING [None]
